FAERS Safety Report 11844302 (Version 1)
Quarter: 2015Q4

REPORT INFORMATION
  Report Type: Spontaneous
  Country: GB (occurrence: GB)
  Receive Date: 20151217
  Receipt Date: 20151217
  Transmission Date: 20160305
  Serious: Yes (Hospitalization, Disabling, Other)
  Sender: FDA-Public Use
  Company Number: GB-WATSON-2015-27901

PATIENT
  Age: 34 Year
  Sex: Female
  Weight: 101.6 kg

DRUGS (3)
  1. QUETIAPINE [Concomitant]
     Active Substance: QUETIAPINE
     Indication: DEPRESSION
     Dosage: 250 MG, DAILY
     Route: 065
     Dates: start: 200904, end: 201301
  2. SERTRALINE [Suspect]
     Active Substance: SERTRALINE HYDROCHLORIDE
     Indication: DEPRESSION
     Dosage: 50 MG, DAILY
     Route: 065
     Dates: start: 2009, end: 20121207
  3. DEPO-PROVERA [Concomitant]
     Active Substance: MEDROXYPROGESTERONE ACETATE
     Indication: CONTRACEPTION
     Dosage: UNK
     Route: 065

REACTIONS (36)
  - Pain [Not Recovered/Not Resolved]
  - Vertigo [Not Recovered/Not Resolved]
  - Confusional state [Recovering/Resolving]
  - Tremor [Not Recovered/Not Resolved]
  - Pyrexia [Not Recovered/Not Resolved]
  - Status epilepticus [Not Recovered/Not Resolved]
  - Muscular weakness [Not Recovered/Not Resolved]
  - Carbon dioxide abnormal [Unknown]
  - Muscle rigidity [Not Recovered/Not Resolved]
  - Micturition urgency [Unknown]
  - Hyperreflexia [Unknown]
  - Serotonin syndrome [Not Recovered/Not Resolved]
  - Hypertension [Not Recovered/Not Resolved]
  - Hypertensive encephalopathy [Not Recovered/Not Resolved]
  - Paraesthesia [Not Recovered/Not Resolved]
  - Back pain [Not Recovered/Not Resolved]
  - Tinnitus [Not Recovered/Not Resolved]
  - Gait disturbance [Not Recovered/Not Resolved]
  - Musculoskeletal stiffness [Not Recovered/Not Resolved]
  - Allodynia [Not Recovered/Not Resolved]
  - Urinary incontinence [Recovered/Resolved with Sequelae]
  - Nausea [Unknown]
  - Hypertonia [Unknown]
  - Respiratory arrest [Recovered/Resolved]
  - White matter lesion [Not Recovered/Not Resolved]
  - Decreased appetite [Unknown]
  - Extensor plantar response [Unknown]
  - Bone marrow disorder [Unknown]
  - Leukoencephalopathy [Recovering/Resolving]
  - Seizure [Not Recovered/Not Resolved]
  - Paraparesis [Unknown]
  - Hallucination [Recovered/Resolved]
  - Muscle spasticity [Not Recovered/Not Resolved]
  - Generalised tonic-clonic seizure [Not Recovered/Not Resolved]
  - Feeling abnormal [Unknown]
  - Thirst decreased [Unknown]

NARRATIVE: CASE EVENT DATE: 2009
